FAERS Safety Report 5103536-3 (Version None)
Quarter: 2006Q3

REPORT INFORMATION
  Report Type: 
  Country: None (occurrence: None)
  Receive Date: 20060913
  Receipt Date: 20060908
  Transmission Date: 20061208
  Serious: Yes (Other)
  Sender: FDA-Public Use
  Company Number: JP-AVENTIS-200612803JP

PATIENT
  Age: 89 Year
  Sex: Male

DRUGS (3)
  1. LASIX [Suspect]
     Route: 048
  2. CEROCRAL [Suspect]
     Route: 048
  3. UNKNOWN DRUG [Concomitant]

REACTIONS (1)
  - ATRIAL FIBRILLATION [None]
